FAERS Safety Report 4523109-0 (Version None)
Quarter: 2004Q4

REPORT INFORMATION
  Report Type: 
  Country: None (occurrence: None)
  Receive Date: 20041208
  Receipt Date: 20041129
  Transmission Date: 20050328
  Serious: Yes (Other)
  Sender: FDA-Public Use
  Company Number: 2004-11-1581

PATIENT
  Age: 43 Year
  Sex: Male

DRUGS (1)
  1. RINDERON               (BETAMATHASONE SODIUM PHOSPHATE) [Suspect]
     Dates: start: 20031101, end: 20031101

REACTIONS (1)
  - ANAPHYLACTIC SHOCK [None]
